FAERS Safety Report 5201988-1 (Version None)
Quarter: 2007Q1

REPORT INFORMATION
  Report Type: 
  Country: None (occurrence: None)
  Receive Date: 20070107
  Receipt Date: 20070107
  Transmission Date: 20070707
  Serious: Yes (Other)
  Sender: FDA-Public Use
  Company Number: None

PATIENT
  Sex: Female

DRUGS (1)
  1. CHANTIX [Suspect]
     Indication: SMOKING CESSATION THERAPY
     Dosage: 0.5 MG DAILY PO
     Route: 048
     Dates: start: 20070101, end: 20070104

REACTIONS (3)
  - AGITATION [None]
  - CONVULSION [None]
  - POSTICTAL STATE [None]
